FAERS Safety Report 8792367 (Version 1)
Quarter: 2012Q4

REPORT INFORMATION
  Report Type: 
  Country: US (occurrence: US)
  Receive Date: 20120918
  Receipt Date: 20120918
  Transmission Date: 20130627
  Serious: No
  Sender: FDA-Public Use
  Company Number: US-PFIZER INC-2012227592

PATIENT
  Sex: Female

DRUGS (1)
  1. LEVOXYL [Suspect]
     Dosage: 50 ug, UNK

REACTIONS (4)
  - Heart rate increased [Unknown]
  - Drug intolerance [Unknown]
  - Muscular weakness [Unknown]
  - Reaction to drug excipients [Unknown]
